FAERS Safety Report 7112415-1 (Version None)
Quarter: 2010Q4

REPORT INFORMATION
  Report Type: 
  Country: None (occurrence: None)
  Receive Date: 20101119
  Receipt Date: 20101025
  Transmission Date: 20110411
  Serious: No
  Sender: FDA-Public Use
  Company Number: A0888799A

PATIENT
  Sex: Male

DRUGS (3)
  1. AVODART [Suspect]
     Route: 048
  2. FLOMAX [Concomitant]
  3. LOVAZA [Concomitant]

REACTIONS (4)
  - BREAST PAIN [None]
  - GYNAECOMASTIA [None]
  - PRODUCT QUALITY ISSUE [None]
  - TACHYCARDIA [None]
